FAERS Safety Report 7242735-1 (Version None)
Quarter: 2011Q1

REPORT INFORMATION
  Report Type: 
  Country: None (occurrence: None)
  Receive Date: 20110125
  Receipt Date: 20110114
  Transmission Date: 20110831
  Serious: Yes (Other)
  Sender: FDA-Public Use
  Company Number: US-BAXTER-2010BH002985

PATIENT
  Sex: Female
  Weight: 47 kg

DRUGS (11)
  1. ZYRTEC [Concomitant]
     Indication: PREMEDICATION
     Route: 048
  2. GAMMAGARD S/D [Suspect]
     Indication: PRIMARY IMMUNODEFICIENCY SYNDROME
     Route: 058
     Dates: start: 20080101, end: 20101001
  3. GAMMAGARD S/D [Suspect]
     Route: 042
     Dates: start: 20080501
  4. GAMMAGARD S/D [Suspect]
     Route: 042
     Dates: start: 20080501
  5. GAMMAGARD S/D [Suspect]
     Route: 058
     Dates: start: 20030701
  6. VICODIN [Concomitant]
     Indication: PREMEDICATION
     Route: 048
  7. GAMMAGARD S/D [Suspect]
     Indication: IMMUNODEFICIENCY COMMON VARIABLE
     Route: 058
     Dates: start: 20080101, end: 20101001
  8. GAMMAGARD S/D [Suspect]
     Route: 042
     Dates: start: 20100401, end: 20100401
  9. GAMMAGARD S/D [Suspect]
     Route: 058
     Dates: start: 20030701
  10. TYLENOL-500 [Concomitant]
     Indication: PREMEDICATION
     Route: 048
  11. GAMMAGARD S/D [Suspect]
     Route: 042
     Dates: start: 20100401, end: 20100401

REACTIONS (4)
  - MENINGISM [None]
  - HEADACHE [None]
  - SKIN DISORDER [None]
  - PAIN [None]
